FAERS Safety Report 20714957 (Version 1)
Quarter: 2022Q2

REPORT INFORMATION
  Report Type: Spontaneous
  Country: US (occurrence: US)
  Receive Date: 20220415
  Receipt Date: 20220415
  Transmission Date: 20220721
  Serious: Yes (Other)
  Sender: FDA-Public Use
  Company Number: US-ANIPHARMA-2022-US-008340

PATIENT
  Age: 87 Year
  Sex: Female
  Weight: 77.11 kg

DRUGS (3)
  1. NEBIVOLOL [Suspect]
     Active Substance: NEBIVOLOL
     Indication: Hypertension
     Dosage: 1 BY MOUTH EVERY NIGHT
     Route: 048
     Dates: start: 20220326, end: 20220408
  2. ELIQUIS [Concomitant]
     Active Substance: APIXABAN
  3. FLECAINIDE [Concomitant]
     Active Substance: FLECAINIDE

REACTIONS (4)
  - Heart rate increased [Recovered/Resolved]
  - Drug ineffective [Recovered/Resolved]
  - Hypertension [Recovered/Resolved]
  - Atrial fibrillation [Recovered/Resolved]

NARRATIVE: CASE EVENT DATE: 20220330
